FAERS Safety Report 26053724 (Version 1)
Quarter: 2025Q4

REPORT INFORMATION
  Report Type: Spontaneous
  Country: US (occurrence: US)
  Receive Date: 20251117
  Receipt Date: 20251117
  Transmission Date: 20260118
  Serious: No
  Sender: ABBVIE
  Company Number: US-ABBVIE-6547791

PATIENT
  Sex: Female

DRUGS (2)
  1. PRED MILD [Suspect]
     Active Substance: PREDNISOLONE ACETATE
     Indication: Glaucoma
     Route: 047
  2. PRED MILD [Suspect]
     Active Substance: PREDNISOLONE ACETATE
     Indication: Uveitis

REACTIONS (1)
  - Off label use [Unknown]
